FAERS Safety Report 20516133 (Version 1)
Quarter: 2022Q1

REPORT INFORMATION
  Report Type: Spontaneous
  Country: IT (occurrence: IT)
  Receive Date: 20220225
  Receipt Date: 20220225
  Transmission Date: 20220423
  Serious: Yes (Other)
  Sender: FDA-Public Use
  Company Number: IT-002147023-NVSC2022IT039253

PATIENT
  Age: 26 Year
  Sex: Female

DRUGS (1)
  1. ERENUMAB [Suspect]
     Active Substance: ERENUMAB
     Indication: Migraine
     Dosage: 70 MG, QMO
     Route: 058

REACTIONS (1)
  - Hypotonia [Unknown]
